FAERS Safety Report 5623554-6 (Version None)
Quarter: 2008Q1

REPORT INFORMATION
  Report Type: 
  Country: None (occurrence: None)
  Receive Date: 20080212
  Receipt Date: 20080206
  Transmission Date: 20080703
  Serious: Yes (Other)
  Sender: FDA-Public Use
  Company Number: US-PFIZER INC-2008012191

PATIENT
  Sex: Female

DRUGS (2)
  1. GLUCOTROL XL [Suspect]
     Indication: DIABETES MELLITUS
  2. SYNTHROID [Concomitant]

REACTIONS (6)
  - BODY HEIGHT DECREASED [None]
  - CATARACT OPERATION [None]
  - PHARMACEUTICAL PRODUCT COMPLAINT [None]
  - SOMNOLENCE [None]
  - TREMOR [None]
  - WEIGHT DECREASED [None]
